FAERS Safety Report 14733409 (Version 1)
Quarter: 2018Q2

REPORT INFORMATION
  Report Type: Spontaneous
  Country: US (occurrence: US)
  Receive Date: 20180409
  Receipt Date: 20180409
  Transmission Date: 20180711
  Serious: Yes (Death)
  Sender: FDA-Public Use
  Company Number: US-ASTELLAS-2018US016932

PATIENT
  Sex: Male
  Weight: 44 kg

DRUGS (2)
  1. AMPICILLIN SODIUM. [Concomitant]
     Active Substance: AMPICILLIN SODIUM
     Indication: PRODUCT USED FOR UNKNOWN INDICATION
     Dosage: UNK UNK, UNKNOWN FREQ.
     Route: 065
     Dates: start: 20171229
  2. TARCEVA [Suspect]
     Active Substance: ERLOTINIB HYDROCHLORIDE
     Indication: BRONCHIAL CARCINOMA
     Route: 048
     Dates: start: 20180105

REACTIONS (1)
  - Death [Fatal]
